FAERS Safety Report 7632473-5 (Version None)
Quarter: 2011Q3

REPORT INFORMATION
  Report Type: 
  Country: None (occurrence: None)
  Receive Date: 20110725
  Receipt Date: 20101018
  Transmission Date: 20111222
  Serious: Yes (Other)
  Sender: FDA-Public Use
  Company Number: US-BRISTOL-MYERS SQUIBB COMPANY-15291552

PATIENT
  Age: 60 Year
  Sex: Male

DRUGS (4)
  1. LOVENOX [Suspect]
     Indication: PULMONARY EMBOLISM
     Dosage: DOSAGE:80MG 2/DAY,SC,100MG/ML,PARENTRAL INJ SOLUTION 100MG/ML
     Route: 058
     Dates: start: 20100801
  2. COUMADIN [Suspect]
     Indication: PULMONARY EMBOLISM
     Dates: start: 20100801
  3. COUMADIN [Suspect]
     Indication: DEEP VEIN THROMBOSIS
     Dates: start: 20100801
  4. LOVENOX [Suspect]
     Indication: DEEP VEIN THROMBOSIS
     Dosage: DOSAGE:80MG 2/DAY,SC,100MG/ML,PARENTRAL INJ SOLUTION 100MG/ML
     Route: 058
     Dates: start: 20100801

REACTIONS (4)
  - DRUG INEFFECTIVE [None]
  - CONTUSION [None]
  - ANTICOAGULATION DRUG LEVEL BELOW THERAPEUTIC [None]
  - INJECTION SITE HAEMORRHAGE [None]
